FAERS Safety Report 16847124 (Version 4)
Quarter: 2021Q3

REPORT INFORMATION
  Report Type: Spontaneous
  Country: US (occurrence: US)
  Receive Date: 20190924
  Receipt Date: 20210715
  Transmission Date: 20211014
  Serious: Yes (Hospitalization)
  Sender: FDA-Public Use
  Company Number: US-TEVA-2019-US-1112263

PATIENT
  Age: 37 Year
  Sex: Female

DRUGS (4)
  1. KETOROLAC TROMETHAMINE. [Suspect]
     Active Substance: KETOROLAC TROMETHAMINE
     Indication: PELVIC CONGESTION
     Route: 042
  2. IBUPROFEN. [Suspect]
     Active Substance: IBUPROFEN
     Indication: PELVIC CONGESTION
     Dosage: WAS DISCHARGED ON IBUPROFEN 600MG EVERY 6H AS NEEDED BUT TOOK 600MG THREE TIMES PER DAY FOR 6 DAY...
     Route: 065
  3. ACETAMINOPHEN. [Suspect]
     Active Substance: ACETAMINOPHEN
     Indication: PELVIC CONGESTION
     Route: 065
  4. IBUPROFEN. [Suspect]
     Active Substance: IBUPROFEN
     Indication: PELVIC CONGESTION
     Route: 065

REACTIONS (3)
  - Renal ischaemia [Recovering/Resolving]
  - Acute kidney injury [Recovered/Resolved]
  - Renal infarct [Recovered/Resolved]
